FAERS Safety Report 6048551-0 (Version None)
Quarter: 2009Q1

REPORT INFORMATION
  Report Type: 
  Country: None (occurrence: None)
  Receive Date: 20090123
  Receipt Date: 20090119
  Transmission Date: 20090719
  Serious: Yes (Disabling)
  Sender: FDA-Public Use
  Company Number: JP-AVENTIS-200910148JP

PATIENT
  Age: 63 Year
  Sex: Male

DRUGS (2)
  1. LANTUS [Suspect]
     Dosage: DOSE: 4 UNITS/DAY
     Route: 058
     Dates: start: 20081226
  2. LANTUS [Suspect]
     Dosage: DOSE: 4 UNITS/DAY
     Route: 058
     Dates: start: 20090114, end: 20090118

REACTIONS (2)
  - BLOOD GLUCOSE INCREASED [None]
  - RENAL FAILURE [None]
